FAERS Safety Report 23960276 (Version 1)
Quarter: 2024Q2

REPORT INFORMATION
  Report Type: Spontaneous
  Country: US (occurrence: US)
  Receive Date: 20240611
  Receipt Date: 20240611
  Transmission Date: 20240715
  Serious: Yes (Other)
  Sender: FDA-Public Use
  Company Number: US-ALEMBIC PHARMACUETICALS LIMITED-2024SCAL000768

PATIENT

DRUGS (8)
  1. FLUOROURACIL [Suspect]
     Active Substance: FLUOROURACIL
     Indication: Colorectal cancer metastatic
     Dosage: 400 MG/M2
     Route: 040
  2. FLUOROURACIL [Suspect]
     Active Substance: FLUOROURACIL
     Dosage: 2400 MG/M2 FOR 46 HOURS
     Route: 042
  3. ONVANSERTIB [Suspect]
     Active Substance: ONVANSERTIB
     Indication: Colorectal cancer metastatic
     Dosage: 12 MG/M2
     Route: 048
  4. ONVANSERTIB [Suspect]
     Active Substance: ONVANSERTIB
     Dosage: 15 MG/M2
     Route: 048
  5. ONVANSERTIB [Suspect]
     Active Substance: ONVANSERTIB
     Dosage: 18 MG/M2
     Route: 048
  6. IRINOTECAN [Suspect]
     Active Substance: IRINOTECAN
     Indication: Colorectal cancer metastatic
     Dosage: 180 MG/M2
     Route: 042
  7. LEUCOVORIN [Suspect]
     Active Substance: LEUCOVORIN\LEUCOVORIN CALCIUM
     Indication: Colorectal cancer metastatic
     Dosage: 400 MG/M2
     Route: 042
  8. BEVACIZUMAB [Suspect]
     Active Substance: BEVACIZUMAB
     Indication: Colorectal cancer metastatic
     Dosage: 5 MILLIGRAM/KILOGRAM
     Route: 042

REACTIONS (1)
  - Intestinal obstruction [Unknown]
